FAERS Safety Report 13166937 (Version 1)
Quarter: 2017Q1

REPORT INFORMATION
  Report Type: Spontaneous
  Country: US (occurrence: US)
  Receive Date: 20170130
  Receipt Date: 20170130
  Transmission Date: 20170428
  Serious: Yes (Other)
  Sender: FDA-Public Use
  Company Number: None

PATIENT
  Age: 47 Year
  Sex: Female
  Weight: 78.75 kg

DRUGS (6)
  1. MOBIC [Concomitant]
     Active Substance: MELOXICAM
  2. AMOLICILLIN [Concomitant]
  3. PREDNISONE. [Concomitant]
     Active Substance: PREDNISONE
  4. MUCINEX [Suspect]
     Active Substance: GUAIFENESIN
     Indication: SINUSITIS
     Dosage: ?          QUANTITY:1 TABLET(S);?
     Route: 048
     Dates: start: 20170127, end: 20170128
  5. ZYRTEC [Concomitant]
     Active Substance: CETIRIZINE HYDROCHLORIDE
  6. MULTIVITAMIN [Concomitant]
     Active Substance: VITAMINS

REACTIONS (5)
  - Pruritus [None]
  - Swelling [None]
  - Dyspnoea [None]
  - Eyelid oedema [None]
  - Rash [None]

NARRATIVE: CASE EVENT DATE: 20170128
